FAERS Safety Report 13234919 (Version 3)
Quarter: 2017Q2

REPORT INFORMATION
  Report Type: Spontaneous
  Country: JP (occurrence: JP)
  Receive Date: 20170215
  Receipt Date: 20170411
  Transmission Date: 20170830
  Serious: Yes (Death)
  Sender: FDA-Public Use
  Company Number: JP-CELGENEUS-JPN-2017024243

PATIENT
  Age: 69 Year
  Sex: Male
  Weight: 56 kg

DRUGS (1)
  1. ABRAXANE [Suspect]
     Active Substance: PACLITAXEL
     Indication: METASTATIC GASTRIC CANCER
     Dosage: 280 MILLIGRAM
     Route: 041
     Dates: start: 20170104, end: 20170104

REACTIONS (4)
  - Disseminated intravascular coagulation [Fatal]
  - Febrile neutropenia [Fatal]
  - Rhabdomyolysis [Fatal]
  - Gastric cancer [Fatal]

NARRATIVE: CASE EVENT DATE: 20170110
